FAERS Safety Report 4531144-1 (Version None)
Quarter: 2004Q4

REPORT INFORMATION
  Report Type: 
  Country: None (occurrence: None)
  Receive Date: 20041216
  Receipt Date: 20041210
  Transmission Date: 20050328
  Serious: Yes (Disabling)
  Sender: FDA-Public Use
  Company Number: 2004CG02426

PATIENT
  Age: 54 Year
  Sex: Female

DRUGS (2)
  1. ARIMIDEX [Suspect]
     Indication: BREAST CANCER
     Dosage: 1 MG QD PO
     Route: 048
     Dates: start: 20040801
  2. TAMOXIFEN CITRATE [Concomitant]

REACTIONS (3)
  - CARPAL TUNNEL SYNDROME [None]
  - HOT FLUSH [None]
  - IMPAIRED WORK ABILITY [None]
